FAERS Safety Report 10577291 (Version 3)
Quarter: 2014Q4

REPORT INFORMATION
  Report Type: Spontaneous
  Country: US (occurrence: US)
  Receive Date: 20141111
  Receipt Date: 20141202
  Transmission Date: 20150529
  Serious: Yes (Other)
  Sender: FDA-Public Use
  Company Number: US-INCYTE CORPORATION-2014IN002872

PATIENT
  Age: 65 Year
  Sex: Female
  Weight: 58.96 kg

DRUGS (8)
  1. GABAPENTIN. [Concomitant]
     Active Substance: GABAPENTIN
     Dosage: 300 MG, BID
     Route: 048
  2. JAKAFI [Suspect]
     Active Substance: RUXOLITINIB
     Indication: MYELOFIBROSIS
     Dosage: NOT SPECIFIED
     Dates: start: 2012
  3. JAKAFI [Suspect]
     Active Substance: RUXOLITINIB
     Dosage: 5 MG, BID
     Route: 048
     Dates: start: 201405, end: 20140527
  4. JAKAFI [Suspect]
     Active Substance: RUXOLITINIB
     Dosage: 10 MG, BID
     Route: 048
     Dates: start: 20131119
  5. OXYCODONE [Concomitant]
     Active Substance: OXYCODONE
     Dosage: 30 MG IN THE MORNING, 15 MG IN THE EVENING
     Route: 048
  6. FENTANYL. [Concomitant]
     Active Substance: FENTANYL
     Dosage: 50 MCG, HR
     Route: 062
     Dates: start: 20140515
  7. CLONAZEPAM. [Concomitant]
     Active Substance: CLONAZEPAM
     Dosage: 0.5 MG, TID
     Route: 048
  8. FENTANYL. [Concomitant]
     Active Substance: FENTANYL
     Dosage: 12 MCG, HR
     Route: 059

REACTIONS (17)
  - Discomfort [Unknown]
  - Malaise [Recovering/Resolving]
  - Back pain [Unknown]
  - Headache [Unknown]
  - Decreased appetite [Unknown]
  - Muscle atrophy [Unknown]
  - Hepatomegaly [Unknown]
  - Pancytopenia [Unknown]
  - Nausea [Unknown]
  - Splenomegaly [Recovering/Resolving]
  - Plasma cell myeloma recurrent [Unknown]
  - Weight decreased [Unknown]
  - Fatigue [Unknown]
  - Blood count abnormal [Unknown]
  - Mouth ulceration [Recovered/Resolved]
  - Flatulence [Unknown]
  - Neuropathy peripheral [Unknown]

NARRATIVE: CASE EVENT DATE: 20140515
